FAERS Safety Report 4951380-X (Version None)
Quarter: 2006Q1

REPORT INFORMATION
  Report Type: 
  Country: None (occurrence: None)
  Receive Date: 20060323
  Receipt Date: 20050824
  Transmission Date: 20060701
  Serious: Yes (Hospitalization)
  Sender: FDA-Public Use
  Company Number: FR-BRISTOL-MYERS SQUIBB COMPANY-13094651

PATIENT
  Age: 44 Year
  Sex: Male
  Weight: 60 kg

DRUGS (3)
  1. SUSTIVA [Suspect]
     Indication: HIV INFECTION
     Route: 048
     Dates: start: 20000601, end: 20050811
  2. VIREAD [Concomitant]
     Indication: HIV INFECTION
     Dates: start: 20000601
  3. EPIVIR [Concomitant]
     Indication: HIV INFECTION
     Dates: start: 20000601

REACTIONS (2)
  - INSOMNIA [None]
  - VERTIGO [None]
